FAERS Safety Report 5926812-0 (Version None)
Quarter: 2008Q4

REPORT INFORMATION
  Report Type: 
  Country: None (occurrence: None)
  Receive Date: 20081022
  Receipt Date: 20070201
  Transmission Date: 20090506
  Serious: Yes (Other)
  Sender: FDA-Public Use
  Company Number: US-WYE-H06418808

PATIENT
  Age: 16 Year
  Sex: Male

DRUGS (1)
  1. ROBITUSSIN COUGH LONG ACTING [Suspect]
     Indication: DRUG ABUSE
     Dosage: ^A WHOLE BOTTLE^
     Route: 048

REACTIONS (4)
  - DRUG ABUSE [None]
  - HALLUCINATION, AUDITORY [None]
  - HALLUCINATION, VISUAL [None]
  - OVERDOSE [None]
